FAERS Safety Report 6208608-8 (Version None)
Quarter: 2009Q2

REPORT INFORMATION
  Report Type: 
  Country: None (occurrence: None)
  Receive Date: 20090529
  Receipt Date: 20090521
  Transmission Date: 20091009
  Serious: Yes (Hospitalization)
  Sender: FDA-Public Use
  Company Number: CN-JNJFOC-20090505394

PATIENT
  Age: 31 Year
  Sex: Male

DRUGS (1)
  1. SPORANOX [Suspect]
     Indication: ONYCHOMYCOSIS
     Route: 048

REACTIONS (4)
  - ACUTE LEUKAEMIA [None]
  - CHEST PAIN [None]
  - NASOPHARYNGITIS [None]
  - THROMBOCYTHAEMIA [None]
